FAERS Safety Report 4951914-5 (Version None)
Quarter: 2006Q1

REPORT INFORMATION
  Report Type: 
  Country: None (occurrence: None)
  Receive Date: 20060323
  Receipt Date: 20060317
  Transmission Date: 20060701
  Serious: Yes (Disabling)
  Sender: FDA-Public Use
  Company Number: US-MERCK-0603USA03325

PATIENT
  Sex: Female

DRUGS (1)
  1. VIOXX [Suspect]
     Route: 048
     Dates: start: 20000501, end: 20020501

REACTIONS (4)
  - EMOTIONAL DISORDER [None]
  - INJURY [None]
  - MULTI-ORGAN DISORDER [None]
  - OCULAR VASCULAR DISORDER [None]
